FAERS Safety Report 6458401-6 (Version None)
Quarter: 2009Q4

REPORT INFORMATION
  Report Type: 
  Country: None (occurrence: None)
  Receive Date: 20091125
  Receipt Date: 20090721
  Transmission Date: 20100525
  Serious: No
  Sender: FDA-Public Use
  Company Number: US-AMGEN-KDL356788

PATIENT
  Sex: Female

DRUGS (4)
  1. ENBREL [Suspect]
     Indication: RHEUMATOID ARTHRITIS
     Route: 058
     Dates: start: 20090717, end: 20090721
  2. LEFLUNOMIDE [Concomitant]
     Route: 048
  3. VITAMIN D [Concomitant]
  4. KENALOG [Concomitant]
     Route: 030

REACTIONS (2)
  - PRURITUS [None]
  - RASH [None]
